FAERS Safety Report 7552827-5 (Version None)
Quarter: 2011Q2

REPORT INFORMATION
  Report Type: 
  Country: None (occurrence: None)
  Receive Date: 20110616
  Receipt Date: 20110607
  Transmission Date: 20111010
  Serious: Yes (Hospitalization)
  Sender: FDA-Public Use
  Company Number: NL-TEVA-285469ISR

PATIENT
  Sex: Female
  Weight: 70 kg

DRUGS (7)
  1. NORTRIPTYLINE HYDROCHLORIDE [Concomitant]
     Dates: start: 20080101
  2. PACLITAXEL [Suspect]
     Indication: PLEURAL EFFUSION
     Dosage: .1429 DOSAGE FORMS;
     Dates: start: 20100501, end: 20101101
  3. PERINDOPRIL ERBUMINE [Concomitant]
     Dosage: 2 MILLIGRAM;
     Dates: start: 20110301
  4. EXEMESTANE [Concomitant]
     Indication: BREAST CANCER METASTATIC
     Dosage: 25 MILLIGRAM;
     Dates: start: 20101206, end: 20110509
  5. TEMAZEPAM [Concomitant]
     Dosage: 10 MILLIGRAM;
     Dates: start: 20080101
  6. FUROSEMIDE [Concomitant]
     Dosage: 80 MILLIGRAM;
     Dates: start: 20110301
  7. BEVACIZUMAB [Suspect]
     Indication: PLEURAL EFFUSION
     Dosage: .0714 DOSAGE FORMS;
     Dates: start: 20100501, end: 20101101

REACTIONS (1)
  - CARDIOMYOPATHY [None]
